FAERS Safety Report 9155012 (Version 2)
Quarter: 2013Q1

REPORT INFORMATION
  Report Type: Spontaneous
  Country: US (occurrence: US)
  Receive Date: 20130311
  Receipt Date: 20130327
  Transmission Date: 20140127
  Serious: No
  Sender: FDA-Public Use
  Company Number: US-PFIZER INC-2013078421

PATIENT
  Age: 52 Year
  Sex: Female

DRUGS (2)
  1. PRISTIQ [Suspect]
     Dosage: 50 MG, 1X/DAY
     Route: 048
  2. PROTONIX [Suspect]
     Dosage: 40 MG, 1X/DAY
     Route: 048

REACTIONS (2)
  - Dyspepsia [Unknown]
  - Bedridden [Unknown]
